FAERS Safety Report 17771448 (Version 2)
Quarter: 2020Q2

REPORT INFORMATION
  Report Type: Report from Study
  Country: ES (occurrence: ES)
  Receive Date: 20200512
  Receipt Date: 20200618
  Transmission Date: 20200714
  Serious: Yes (Hospitalization, Other)
  Sender: FDA-Public Use
  Company Number: ES-MYLANLABS-2020M1045795

PATIENT
  Age: 68 Year
  Sex: Female
  Weight: 75 kg

DRUGS (20)
  1. TRASTUZUMAB. [Suspect]
     Active Substance: TRASTUZUMAB
     Dosage: MOST RECENT DOSE OF RHUPH20/TRASTUZUMAB WAS RECEIVED ON 10/SEP/2013.
     Route: 058
     Dates: start: 20130729, end: 20131001
  2. TRASTUZUMAB. [Suspect]
     Active Substance: TRASTUZUMAB
     Dosage: UNK
  3. CARBOPLATIN. [Suspect]
     Active Substance: CARBOPLATIN
     Indication: PRODUCT USED FOR UNKNOWN INDICATION
     Dosage: UNK
     Route: 065
     Dates: start: 20130729
  4. NEUPOGEN [Concomitant]
     Active Substance: FILGRASTIM
     Dosage: 6000/MIU/L
     Dates: start: 20130820, end: 20130824
  5. NEUPOGEN [Concomitant]
     Active Substance: FILGRASTIM
     Dosage: 6000/U/ML
     Dates: start: 20130805, end: 20130807
  6. PANTOPRAZOL                        /01263201/ [Concomitant]
     Active Substance: PANTOPRAZOLE
     Dosage: UNK
     Dates: start: 201211
  7. CARBOPLATIN. [Suspect]
     Active Substance: CARBOPLATIN
     Dosage: UNK
     Route: 065
     Dates: start: 20130819, end: 20130819
  8. TRASTUZUMAB. [Suspect]
     Active Substance: TRASTUZUMAB
     Indication: HER2 POSITIVE BREAST CANCER
     Dosage: DATE OF LAST DOSE PRIOR TO SAE:10/SEP/2019, PERMENANTLY DISCONTINUED ON 15/APR/2014
     Route: 058
     Dates: start: 20130701
  9. METFORMIN [Suspect]
     Active Substance: METFORMIN HYDROCHLORIDE
     Indication: DIABETES MELLITUS
     Dosage: 850 MILLIGRAM
     Route: 048
     Dates: start: 201211, end: 201310
  10. SIMVASTATIN. [Concomitant]
     Active Substance: SIMVASTATIN
     Dosage: 40 MILLIGRAM
     Dates: start: 201211
  11. NITROFURANTOINA [Concomitant]
     Active Substance: NITROFURANTOIN
     Dosage: UNK
     Dates: start: 20130805, end: 20130812
  12. PARACETAMOL [Concomitant]
     Active Substance: ACETAMINOPHEN
     Dosage: 500 MILLIGRAM
     Dates: start: 201211
  13. FERROUS SULFATE. [Concomitant]
     Active Substance: FERROUS SULFATE
     Dosage: UNK
     Dates: start: 20130729, end: 20130730
  14. RANITIDINE. [Concomitant]
     Active Substance: RANITIDINE
     Dosage: 300 MILLIGRAM
     Route: 042
     Dates: start: 201211
  15. DOMPERIDONE [Concomitant]
     Active Substance: DOMPERIDONE
     Dosage: 20/MG/ML
     Dates: start: 20130805
  16. TRASTUZUMAB. [Suspect]
     Active Substance: TRASTUZUMAB
     Dosage: UNK
     Route: 058
     Dates: start: 20131022
  17. NEUPOGEN [Concomitant]
     Active Substance: FILGRASTIM
     Dosage: 150000/U/ML
     Dates: start: 20130819, end: 20130820
  18. DOCETAXEL. [Suspect]
     Active Substance: DOCETAXEL
     Indication: PRODUCT USED FOR UNKNOWN INDICATION
     Dosage: DAILY
     Route: 065
     Dates: start: 20130701
  19. CARBOPLATIN. [Suspect]
     Active Substance: CARBOPLATIN
     Dosage: DAILY
     Route: 065
     Dates: start: 20130701, end: 20130729
  20. FOSFOMYCINE [Suspect]
     Active Substance: FOSFOMYCIN
     Indication: PRODUCT USED FOR UNKNOWN INDICATION
     Dosage: 1 G EVERY 2 DAYS (1 G/ 24 HR)
     Route: 065
     Dates: start: 20130704

REACTIONS (4)
  - Ejection fraction decreased [Unknown]
  - Blood creatinine decreased [Unknown]
  - Acute kidney injury [Recovered/Resolved]
  - Diarrhoea [Recovered/Resolved]

NARRATIVE: CASE EVENT DATE: 20130706
